FAERS Safety Report 4455707-7 (Version None)
Quarter: 2004Q3

REPORT INFORMATION
  Report Type: 
  Country: None (occurrence: None)
  Receive Date: 20040920
  Receipt Date: 20040920
  Transmission Date: 20050211
  Serious: Yes (Hospitalization)
  Sender: FDA-Public Use
  Company Number: None

PATIENT
  Age: 65 Year
  Sex: Male
  Weight: 48.5349 kg

DRUGS (1)
  1. MEGACE [Suspect]
     Indication: WEIGHT DECREASED
     Dosage: 20 ML DAILY
     Dates: start: 20040813, end: 20040825

REACTIONS (10)
  - ASPIRATION [None]
  - ASTHENIA [None]
  - CHEST DISCOMFORT [None]
  - DYSPNOEA [None]
  - EATING DISORDER [None]
  - FAILURE TO THRIVE [None]
  - FEEDING TUBE COMPLICATION [None]
  - PROCEDURAL COMPLICATION [None]
  - TACHYCARDIA [None]
  - WEIGHT DECREASED [None]
